FAERS Safety Report 7648372-9 (Version None)
Quarter: 2011Q3

REPORT INFORMATION
  Report Type: 
  Country: None (occurrence: None)
  Receive Date: 20110801
  Receipt Date: 20110725
  Transmission Date: 20111222
  Serious: Yes (Hospitalization, Other)
  Sender: FDA-Public Use
  Company Number: FR-ABBOTT-11P-056-0841433-00

PATIENT
  Sex: Female

DRUGS (4)
  1. VIREAD [Suspect]
     Indication: HIV TEST POSITIVE
     Dosage: 1 DF DAILY
     Route: 048
     Dates: start: 20051011
  2. ZIAGEN [Suspect]
     Indication: HIV TEST POSITIVE
     Dosage: 1 DF DAILY
     Route: 048
     Dates: start: 20051011
  3. REYATAZ [Suspect]
     Indication: HIV TEST POSITIVE
     Route: 048
     Dates: start: 20051011
  4. NORVIR [Suspect]
     Indication: HIV TEST POSITIVE
     Route: 048
     Dates: start: 20051011

REACTIONS (8)
  - GENERAL PHYSICAL HEALTH DETERIORATION [None]
  - RENAL COLIC [None]
  - FLANK PAIN [None]
  - HYPERTENSION [None]
  - RENAL FAILURE [None]
  - HAEMATURIA [None]
  - PAIN [None]
  - HYPERCREATINAEMIA [None]
